FAERS Safety Report 21189721 (Version 2)
Quarter: 2022Q3

REPORT INFORMATION
  Report Type: Spontaneous
  Country: US (occurrence: US)
  Receive Date: 20220809
  Receipt Date: 20220812
  Transmission Date: 20221027
  Serious: Yes (Hospitalization, Other)
  Sender: FDA-Public Use
  Company Number: US-TORRENT-00011956

PATIENT
  Age: 14 Year
  Sex: Male

DRUGS (4)
  1. OLANZAPINE [Suspect]
     Active Substance: OLANZAPINE
     Indication: Substance-induced psychotic disorder
     Dosage: 10 MG TOTAL DAILY DOSE
     Route: 065
  2. LORAZEPAM [Concomitant]
     Active Substance: LORAZEPAM
     Indication: Agitation
     Dosage: 2.5 MG TOTAL DAILY DOSE
     Route: 065
  3. QUETIAPINE [Concomitant]
     Active Substance: QUETIAPINE
     Indication: Psychotic symptom
     Dosage: UNKNOWN
     Route: 065
  4. VALPROIC ACID [Concomitant]
     Active Substance: VALPROIC ACID
     Indication: Mania
     Dosage: 250 MG TWICE DAILY
     Route: 065

REACTIONS (1)
  - Catatonia [Recovering/Resolving]
